FAERS Safety Report 7757795-9 (Version None)
Quarter: 2011Q3

REPORT INFORMATION
  Report Type: 
  Country: None (occurrence: None)
  Receive Date: 20110918
  Receipt Date: 20110909
  Transmission Date: 20111222
  Serious: Yes (Other)
  Sender: FDA-Public Use
  Company Number: CA-ASTRAZENECA-2011SE37673

PATIENT
  Age: 24 Year
  Sex: Female

DRUGS (2)
  1. BRICANYL [Concomitant]
     Indication: ASTHMA
     Dosage: 2 PUFFS FOUR TIMES A DAY AS NEEDED
     Route: 055
  2. SYMBICORT [Suspect]
     Indication: ASTHMA
     Dosage: 200/6 MCG, 2 PUFFS
     Route: 055
     Dates: start: 20080511

REACTIONS (2)
  - DYSPNOEA [None]
  - DRUG INEFFECTIVE [None]
